FAERS Safety Report 24603752 (Version 3)
Quarter: 2024Q4

REPORT INFORMATION
  Report Type: Spontaneous
  Country: US (occurrence: US)
  Receive Date: 20241111
  Receipt Date: 20241203
  Transmission Date: 20250114
  Serious: No
  Sender: MERCK
  Company Number: US-009507513-2411USA000288

PATIENT
  Sex: Female
  Weight: 90.3 kg

DRUGS (1)
  1. WINREVAIR [Suspect]
     Active Substance: SOTATERCEPT-CSRK
     Indication: Pulmonary hypertension
     Dosage: 60 MG
     Route: 058
     Dates: start: 20240605, end: 20240920

REACTIONS (3)
  - Dizziness [Recovered/Resolved]
  - Headache [Recovering/Resolving]
  - Haemoglobin increased [Unknown]

NARRATIVE: CASE EVENT DATE: 20240101
